FAERS Safety Report 8272260-0 (Version None)
Quarter: 2012Q1

REPORT INFORMATION
  Report Type: 
  Country: None (occurrence: None)
  Receive Date: 20120312
  Receipt Date: 20120111
  Transmission Date: 20120608
  Serious: No
  Sender: FDA-Public Use
  Company Number: 2012SP002301

PATIENT
  Age: 37 Year
  Sex: Female

DRUGS (4)
  1. AMBIEN [Concomitant]
  2. TOPAMAX [Concomitant]
  3. CLONAZEPAM [Concomitant]
  4. SAPHRIS [Suspect]
     Indication: BIPOLAR DISORDER
     Dosage: 5 MG;QD;SL
     Route: 060
     Dates: start: 20120110, end: 20120111

REACTIONS (7)
  - UNDERDOSE [None]
  - HYPOAESTHESIA ORAL [None]
  - MUSCULOSKELETAL STIFFNESS [None]
  - AKATHISIA [None]
  - BACK PAIN [None]
  - WEIGHT INCREASED [None]
  - INAPPROPRIATE SCHEDULE OF DRUG ADMINISTRATION [None]
